FAERS Safety Report 7373265-4 (Version None)
Quarter: 2011Q1

REPORT INFORMATION
  Report Type: 
  Country: None (occurrence: None)
  Receive Date: 20110324
  Receipt Date: 20110316
  Transmission Date: 20110831
  Serious: Yes (Hospitalization)
  Sender: FDA-Public Use
  Company Number: US-BAXTER-2011BH003321

PATIENT
  Age: 73 Year
  Sex: Male

DRUGS (4)
  1. DIANEAL [Suspect]
     Indication: RENAL FAILURE CHRONIC
     Route: 033
     Dates: end: 20110101
  2. DIANEAL [Suspect]
     Route: 033
     Dates: start: 20110301
  3. DIANEAL [Suspect]
     Route: 033
     Dates: start: 20110301
  4. DIANEAL [Suspect]
     Indication: PERITONEAL DIALYSIS
     Route: 033
     Dates: end: 20110101

REACTIONS (6)
  - CHOLECYSTITIS INFECTIVE [None]
  - BLOODY PERITONEAL EFFLUENT [None]
  - CHOLECYSTITIS [None]
  - HYPOTENSION [None]
  - ASTHENIA [None]
  - PERITONEAL EFFLUENT ABNORMAL [None]
